FAERS Safety Report 19859474 (Version 2)
Quarter: 2022Q4

REPORT INFORMATION
  Report Type: Spontaneous
  Country: US (occurrence: US)
  Receive Date: 20210921
  Receipt Date: 20221016
  Transmission Date: 20230113
  Serious: No
  Sender: FDA-Public Use
  Company Number: US-CELLTRION INC.-2020US031102

PATIENT

DRUGS (2)
  1. INFLECTRA [Suspect]
     Active Substance: INFLIXIMAB-DYYB
     Indication: Colitis ulcerative
     Dosage: UNKNOWN
     Dates: start: 202007, end: 202008
  2. PREDNISONE [Concomitant]
     Active Substance: PREDNISONE
     Indication: Colitis ulcerative
     Dosage: 40MG DAILY BY MOUTH
     Route: 048

REACTIONS (1)
  - Product dose omission issue [Unknown]
